FAERS Safety Report 5840952-6 (Version None)
Quarter: 2008Q3

REPORT INFORMATION
  Report Type: 
  Country: None (occurrence: None)
  Receive Date: 20080811
  Receipt Date: 20080804
  Transmission Date: 20090109
  Serious: Yes (Other)
  Sender: FDA-Public Use
  Company Number: JP-PFIZER INC-2008065352

PATIENT

DRUGS (3)
  1. ATARAX [Suspect]
     Route: 048
  2. RINDERON-VG [Concomitant]
     Route: 062
  3. AZUNOL [Concomitant]
     Route: 062

REACTIONS (2)
  - FAECES DISCOLOURED [None]
  - FREQUENT BOWEL MOVEMENTS [None]
